FAERS Safety Report 8017326-5 (Version None)
Quarter: 2012Q1

REPORT INFORMATION
  Report Type: 
  Country: None (occurrence: None)
  Receive Date: 20120102
  Receipt Date: 20111221
  Transmission Date: 20120608
  Serious: Yes (Other)
  Sender: FDA-Public Use
  Company Number: CA-ROCHE-1025704

PATIENT
  Sex: Female

DRUGS (1)
  1. XOLAIR [Suspect]
     Indication: ASTHMA
     Dosage: FREQUENCY-BIW
     Route: 058
     Dates: start: 20101101

REACTIONS (3)
  - GLAUCOMA [None]
  - BLADDER CANCER [None]
  - DIABETES MELLITUS [None]
